FAERS Safety Report 4433284-4 (Version None)
Quarter: 2004Q3

REPORT INFORMATION
  Report Type: 
  Country: None (occurrence: None)
  Receive Date: 20040824
  Receipt Date: 20040806
  Transmission Date: 20050211
  Serious: Yes (Other)
  Sender: FDA-Public Use
  Company Number: B0342413A

PATIENT
  Age: 44 Year
  Sex: Male

DRUGS (3)
  1. EPIVIR [Suspect]
  2. STAVUDINE (FORMULATION UNKNOWN) (STAVUDINE) [Suspect]
  3. NELFINAVIR MESYLATE (FORMULATION UNKNOWN) (NELFINAVIR MESYLATE) [Suspect]

REACTIONS (3)
  - ASTHENIA [None]
  - MITOCHONDRIAL DNA DELETION [None]
  - PERIPHERAL SENSORY NEUROPATHY [None]
